FAERS Safety Report 4801927-9 (Version None)
Quarter: 2005Q4

REPORT INFORMATION
  Report Type: 
  Country: None (occurrence: None)
  Receive Date: 20051011
  Receipt Date: 20051001
  Transmission Date: 20060501
  Serious: Yes (Other)
  Sender: FDA-Public Use
  Company Number: 2005136846

PATIENT
  Age: 47 Year
  Sex: Male
  Weight: 87.0906 kg

DRUGS (6)
  1. LIPITOR [Suspect]
     Indication: BLOOD CHOLESTEROL INCREASED
     Dosage: 10 MG (10 MG, 1 IN 1 D), ORAL
     Route: 048
     Dates: start: 20050901, end: 20050926
  2. LOPID [Suspect]
     Indication: BLOOD CHOLESTEROL INCREASED
     Dosage: ORAL
     Route: 048
  3. EFFEXOR [Concomitant]
  4. ALTACE [Concomitant]
  5. SYNTHROID [Concomitant]
  6. ASPIRIN [Concomitant]

REACTIONS (8)
  - ARTHRALGIA [None]
  - GALLBLADDER OPERATION [None]
  - HYPOAESTHESIA [None]
  - JOINT SWELLING [None]
  - PAIN IN EXTREMITY [None]
  - PANCREATITIS [None]
  - SHOULDER PAIN [None]
  - STENT PLACEMENT [None]
